FAERS Safety Report 8802747 (Version 2)
Quarter: 2012Q4

REPORT INFORMATION
  Report Type: 
  Country: JP (occurrence: JP)
  Receive Date: 20120921
  Receipt Date: 20121211
  Transmission Date: 20130627
  Serious: Yes (Other)
  Sender: FDA-Public Use
  Company Number: JP-009507513-1209JPN008206

PATIENT
  Age: 60 Year
  Sex: Male
  Weight: 72 kg

DRUGS (13)
  1. PEGINTRON [Suspect]
     Indication: CHRONIC HEPATITIS C
     Dosage: 1.5 Microgram per kilogram, qw
     Route: 058
     Dates: start: 20120519
  2. REBETOL [Suspect]
     Indication: CHRONIC HEPATITIS C
     Dosage: 800 mg, qd
     Route: 048
     Dates: start: 20120519, end: 20120622
  3. REBETOL [Suspect]
     Dosage: 400 mg, qd
     Route: 048
     Dates: start: 20120623, end: 20120629
  4. REBETOL [Suspect]
     Dosage: 200 mg, qd
     Route: 048
     Dates: start: 20120630, end: 20120713
  5. REBETOL [Suspect]
     Dosage: 200 mg/day, 3 times a week
     Route: 048
     Dates: start: 20120714, end: 20120717
  6. REBETOL [Suspect]
     Dosage: 200mg,qd
     Route: 048
     Dates: start: 20121006, end: 20121012
  7. REBETOL [Suspect]
     Dosage: 600 mg,qd
     Route: 048
     Dates: start: 20121013
  8. TELAVIC [Suspect]
     Indication: CHRONIC HEPATITIS C
     Dosage: 2250 mg, qd
     Route: 048
     Dates: start: 20120519, end: 20120622
  9. TELAVIC [Suspect]
     Dosage: 1500 mg, qd
     Route: 048
     Dates: start: 20120623, end: 20120720
  10. SALOBEL [Concomitant]
     Indication: BLOOD URIC ACID INCREASED
     Dosage: 200 mg, qd  (formulation: POR)
     Route: 048
     Dates: start: 20120609
  11. SALOBEL [Concomitant]
     Dosage: 100 mg, qd
     Route: 048
     Dates: start: 20120609
  12. GASMOTIN [Concomitant]
     Indication: NAUSEA
     Dosage: 15 mg, qd  (formulation: POR)
     Route: 048
     Dates: start: 20120616
  13. NAUZELIN [Concomitant]
     Indication: NAUSEA
     Dosage: 20 mg, qd  (formulation: POR)
     Route: 048
     Dates: start: 20120616

REACTIONS (1)
  - Anaemia [Recovering/Resolving]
